FAERS Safety Report 10179360 (Version 1)
Quarter: 2014Q2

REPORT INFORMATION
  Report Type: Spontaneous
  Country: RU (occurrence: RU)
  Receive Date: 20140519
  Receipt Date: 20140519
  Transmission Date: 20141212
  Serious: Yes (Other)
  Sender: FDA-Public Use
  Company Number: RU-ASTRAZENECA-2014SE31930

PATIENT
  Sex: 0

DRUGS (1)
  1. MARCAIN SPINAL [Suspect]
     Indication: SPINAL ANAESTHESIA
     Route: 008

REACTIONS (1)
  - Anaesthetic complication [Recovered/Resolved]
